FAERS Safety Report 23842983 (Version 1)
Quarter: 2024Q2

REPORT INFORMATION
  Report Type: Spontaneous
  Country: CA (occurrence: CA)
  Receive Date: 20240510
  Receipt Date: 20240510
  Transmission Date: 20240716
  Serious: Yes (Hospitalization)
  Sender: FDA-Public Use
  Company Number: CA-TEVA-VS-3197001

PATIENT
  Age: 77 Year
  Sex: Female
  Weight: 85 kg

DRUGS (2)
  1. CARBOPLATIN [Suspect]
     Active Substance: CARBOPLATIN
     Indication: Ovarian cancer
     Dosage: INJECTION BP, SOLUTION INTRAVENOUS, ONCE
     Route: 042
  2. PACLITAXEL [Suspect]
     Active Substance: PACLITAXEL
     Indication: Ovarian cancer
     Dosage: SOLUTION INTRAVENOUS, ONCE, FOR?INJECTION
     Route: 042

REACTIONS (2)
  - Toxic cardiomyopathy [Recovering/Resolving]
  - Ejection fraction decreased [Recovering/Resolving]
